FAERS Safety Report 7355797-8 (Version None)
Quarter: 2011Q1

REPORT INFORMATION
  Report Type: 
  Country: None (occurrence: None)
  Receive Date: 20110316
  Receipt Date: 20110307
  Transmission Date: 20110831
  Serious: Yes (Hospitalization)
  Sender: FDA-Public Use
  Company Number: US-US-EMD SERONO, INC.-231486J09USA

PATIENT
  Sex: Female

DRUGS (9)
  1. COZAAR [Concomitant]
     Indication: HYPERTENSION
  2. CYMBALTA [Concomitant]
     Indication: PAIN
  3. VICODIN [Concomitant]
     Indication: PAIN
  4. REBIF [Suspect]
     Indication: MULTIPLE SCLEROSIS
     Route: 065
     Dates: end: 20070101
  5. LASIX [Concomitant]
     Indication: OEDEMA PERIPHERAL
  6. BACLOFEN [Concomitant]
     Indication: MUSCLE SPASTICITY
  7. ZANAFLEX [Concomitant]
     Indication: MUSCLE SPASTICITY
  8. REBIF [Suspect]
     Route: 058
     Dates: start: 20090902
  9. KLONOPIN [Concomitant]

REACTIONS (3)
  - FALL [None]
  - BLOOD PRESSURE ABNORMAL [None]
  - PAIN [None]
